FAERS Safety Report 9631445 (Version 1)
Quarter: 2013Q4

REPORT INFORMATION
  Report Type: Spontaneous
  Country: GB (occurrence: None)
  Receive Date: 20131015
  Receipt Date: 20131015
  Transmission Date: 20140711
  Serious: Yes (Other)
  Sender: FDA-Public Use
  Company Number: AUR-APL-2013-08236

PATIENT
  Age: 50 Year
  Sex: Male

DRUGS (3)
  1. RIBAVIRIN [Suspect]
     Indication: HEPATITIS C
     Route: 048
     Dates: start: 20121217
  2. TELAPREVIR (TELAPREVIR) [Suspect]
     Indication: HEPATITIS C
     Dosage: 2250 MG (750 MG, 3 IN 1 D), ORAL
     Route: 048
     Dates: start: 20121217
  3. PEGINTERFERON ALFA-2B (PEGINTERFERON ALFA-2B) [Suspect]
     Indication: HEPATITIS C
     Dosage: SUBCUTANEOUS
     Route: 058
     Dates: start: 20121217

REACTIONS (6)
  - Rash [None]
  - Nausea [None]
  - Fatigue [None]
  - Pain [None]
  - Malaise [None]
  - Anorectal discomfort [None]
